FAERS Safety Report 20415000 (Version 1)
Quarter: 2022Q1

REPORT INFORMATION
  Report Type: Spontaneous
  Country: TR (occurrence: TR)
  Receive Date: 20220202
  Receipt Date: 20220202
  Transmission Date: 20220423
  Serious: Yes (Other)
  Sender: FDA-Public Use
  Company Number: TR-GILEAD-2022-0567170

PATIENT
  Sex: Female

DRUGS (2)
  1. VIREAD [Suspect]
     Active Substance: TENOFOVIR DISOPROXIL FUMARATE
     Indication: Hepatitis B
     Dosage: UNK
     Route: 065
  2. EFAVIRENZ [Concomitant]
     Active Substance: EFAVIRENZ

REACTIONS (4)
  - Abortion spontaneous [Recovered/Resolved]
  - Hepatitis B DNA increased [Not Recovered/Not Resolved]
  - Drug ineffective [Unknown]
  - Maternal exposure during pregnancy [Recovered/Resolved]
